FAERS Safety Report 17966263 (Version 10)
Quarter: 2021Q1

REPORT INFORMATION
  Report Type: Report from Study
  Country: US (occurrence: US)
  Receive Date: 20200630
  Receipt Date: 20210308
  Transmission Date: 20210419
  Serious: Yes (Other)
  Sender: FDA-Public Use
  Company Number: NVSC2020US182414

PATIENT
  Sex: Male

DRUGS (4)
  1. ENTRESTO [Interacting]
     Active Substance: SACUBITRIL\VALSARTAN
     Dosage: 200 MG, BID (97/103 MG)
     Route: 065
     Dates: start: 202002
  2. ENTRESTO [Suspect]
     Active Substance: SACUBITRIL\VALSARTAN
     Indication: PRODUCT USED FOR UNKNOWN INDICATION
     Dosage: UNK
     Route: 065
     Dates: start: 201912
  3. ENTRESTO [Interacting]
     Active Substance: SACUBITRIL\VALSARTAN
     Dosage: 200 MG, BID (97/103 MG)
     Route: 048
     Dates: start: 202001
  4. CARVEDILOL. [Interacting]
     Active Substance: CARVEDILOL
     Indication: PRODUCT USED FOR UNKNOWN INDICATION
     Dosage: UNK
     Route: 065

REACTIONS (19)
  - Emotional distress [Unknown]
  - Memory impairment [Unknown]
  - Blood triglycerides decreased [Recovering/Resolving]
  - Blood pressure abnormal [Unknown]
  - Stress [Unknown]
  - Rhinorrhoea [Not Recovered/Not Resolved]
  - Throat clearing [Not Recovered/Not Resolved]
  - Drug interaction [Unknown]
  - Overweight [Unknown]
  - Weight decreased [Unknown]
  - Product dose omission issue [Unknown]
  - Feeling abnormal [Unknown]
  - Cough [Unknown]
  - Head injury [Recovering/Resolving]
  - Hypotension [Unknown]
  - Dizziness postural [Not Recovered/Not Resolved]
  - Pollakiuria [Unknown]
  - Dyspnoea [Unknown]
  - Ejection fraction decreased [Unknown]
